FAERS Safety Report 10264474 (Version 1)
Quarter: 2014Q2

REPORT INFORMATION
  Report Type: Spontaneous
  Country: US (occurrence: US)
  Receive Date: 20140627
  Receipt Date: 20140627
  Transmission Date: 20141212
  Serious: Yes (Hospitalization)
  Sender: FDA-Public Use
  Company Number: US-BAYER-2014-094753

PATIENT
  Age: 29 Year
  Sex: Female

DRUGS (15)
  1. YAZ [Suspect]
  2. ZOMIG [Concomitant]
     Dosage: 5 MG, 3 DISPENSED
  3. PERCOCET [Concomitant]
     Indication: ARTHRALGIA
     Dosage: 5/325 MG, 1 TO 2 TABLETS EVERY 6 HOURS AS NEEDED
     Route: 048
  4. INDERAL LA [Concomitant]
     Dosage: 180 MG, DAILY AS OF 16-FEB-2005; 120 MG DAILY AS OF 07-MAR-2005
     Route: 048
     Dates: start: 20050216
  5. ASPIRIN [Concomitant]
     Dosage: 325 MG, QD
     Dates: start: 20050307
  6. NORTRIPTYLINE [Concomitant]
  7. DILAUDID [Concomitant]
  8. LIDOCAINE [Concomitant]
  9. DURAGESIC [Concomitant]
  10. FENTANYL [Concomitant]
  11. SENOKOT [Concomitant]
  12. COLACE [Concomitant]
  13. PREDNISONE [Concomitant]
  14. DARVOCET [Concomitant]
  15. LEVAQUIN [Concomitant]
     Indication: ESCHERICHIA URINARY TRACT INFECTION

REACTIONS (1)
  - Pulmonary embolism [Recovered/Resolved]
